FAERS Safety Report 9579950 (Version 2)
Quarter: 2014Q3

REPORT INFORMATION
  Report Type: Report from Study
  Country: US (occurrence: US)
  Receive Date: 20131002
  Receipt Date: 20140705
  Transmission Date: 20150326
  Serious: Yes (Hospitalization, Other)
  Sender: FDA-Public Use
  Company Number: US-ALEXION PHARMACEUTICALS INC.-A201302449

PATIENT

DRUGS (1)
  1. SOLIRIS [Suspect]
     Active Substance: ECULIZUMAB
     Indication: PAROXYSMAL NOCTURNAL HAEMOGLOBINURIA
     Dosage: 900 MG, Q2W
     Route: 042
     Dates: start: 20071010

REACTIONS (15)
  - White blood cell count decreased [Unknown]
  - Abdominal pain upper [Unknown]
  - Chills [Unknown]
  - Unevaluable event [Unknown]
  - Headache [Unknown]
  - Hospitalisation [Unknown]
  - Haemoglobin decreased [Unknown]
  - Pain [Unknown]
  - Fatigue [Unknown]
  - Platelet count decreased [Unknown]
  - Neutropenia [Unknown]
  - Haemolysis [Unknown]
  - Pyrexia [Unknown]
  - Oesophageal spasm [Unknown]
  - Chromaturia [Unknown]

NARRATIVE: CASE EVENT DATE: 20130922
